FAERS Safety Report 19622420 (Version 2)
Quarter: 2022Q4

REPORT INFORMATION
  Report Type: Spontaneous
  Country: US (occurrence: US)
  Receive Date: 20210728
  Receipt Date: 20221010
  Transmission Date: 20230113
  Serious: Yes (Other)
  Sender: FDA-Public Use
  Company Number: US-SA-SAC20210726000441

PATIENT
  Age: 83 Year
  Sex: Female

DRUGS (1)
  1. ZANTAC [Suspect]
     Active Substance: RANITIDINE HYDROCHLORIDE
     Dosage: UNK
     Dates: start: 198303, end: 201809

REACTIONS (7)
  - Hepatic cancer stage IV [Unknown]
  - Gastrointestinal carcinoma [Unknown]
  - Renal cancer [Unknown]
  - Lung carcinoma cell type unspecified stage IV [Unknown]
  - Pancreatic carcinoma stage IV [Unknown]
  - Gastric cancer stage IV [Unknown]
  - Prostate cancer stage IV [Unknown]

NARRATIVE: CASE EVENT DATE: 20180801
